FAERS Safety Report 19868426 (Version 6)
Quarter: 2022Q2

REPORT INFORMATION
  Report Type: Report from Study
  Country: US (occurrence: US)
  Receive Date: 20210921
  Receipt Date: 20220411
  Transmission Date: 20220721
  Serious: Yes (Hospitalization, Other)
  Sender: FDA-Public Use
  Company Number: US-SA-SAC20210414000677

PATIENT
  Age: 6 Year
  Sex: Male
  Weight: 29.7 kg

DRUGS (3)
  1. DUPILUMAB [Suspect]
     Active Substance: DUPILUMAB
     Indication: Dermatitis allergic
     Dosage: 400 MG, 1X
     Route: 058
     Dates: start: 20210519, end: 20210519
  2. DUPILUMAB [Suspect]
     Active Substance: DUPILUMAB
     Dosage: 200 MG, QOW
     Route: 058
     Dates: start: 2021
  3. SULFAMETHOXAZOLE\TRIMETHOPRIM [Suspect]
     Active Substance: SULFAMETHOXAZOLE\TRIMETHOPRIM
     Dosage: UNK

REACTIONS (11)
  - Hospitalisation [Recovering/Resolving]
  - Staphylococcal infection [Not Recovered/Not Resolved]
  - Eczema infected [Not Recovered/Not Resolved]
  - Fungal infection [Unknown]
  - Rash [Recovered/Resolved]
  - Rash [Unknown]
  - Drug hypersensitivity [Recovered/Resolved]
  - Eczema [Unknown]
  - Therapeutic product effect decreased [Unknown]
  - Product dose omission issue [Unknown]
  - Product use in unapproved indication [Unknown]

NARRATIVE: CASE EVENT DATE: 20210101
